FAERS Safety Report 6029877-3 (Version None)
Quarter: 2008Q4

REPORT INFORMATION
  Report Type: 
  Country: None (occurrence: None)
  Receive Date: 20081222
  Receipt Date: 20080925
  Transmission Date: 20090506
  Serious: No
  Sender: FDA-Public Use
  Company Number: US-WYE-H06168608

PATIENT
  Age: 40 Year
  Sex: Female
  Weight: 61.29 kg

DRUGS (8)
  1. PRISTIQ [Suspect]
     Indication: DEPRESSION
     Dosage: 50 MG 1X PER 1DAY, ORAL
     Route: 048
     Dates: start: 20080701
  2. ULTRAM [Concomitant]
  3. LIDODERM [Concomitant]
  4. XANAX [Concomitant]
  5. SYNTHROID [Concomitant]
  6. IMITREX (SUMATRIPTAN SUCCINATE) [Concomitant]
  7. SOMA [Concomitant]
  8. ASPIRIN [Concomitant]

REACTIONS (2)
  - DRUG INEFFECTIVE [None]
  - DRUG SCREEN POSITIVE [None]
